FAERS Safety Report 5029979-4 (Version None)
Quarter: 2006Q2

REPORT INFORMATION
  Report Type: 
  Country: None (occurrence: None)
  Receive Date: 20060620
  Receipt Date: 20060608
  Transmission Date: 20061013
  Serious: Yes (Hospitalization)
  Sender: FDA-Public Use
  Company Number: JP-MERCK-0606USA02209

PATIENT
  Age: 69 Year
  Sex: Female

DRUGS (4)
  1. SINGULAIR [Suspect]
     Indication: ASTHMA
     Route: 048
     Dates: start: 20060417, end: 20060513
  2. ZYRTEC [Suspect]
     Indication: PRURITUS
     Route: 048
     Dates: start: 20060508, end: 20060513
  3. ZYRTEC [Suspect]
     Indication: RASH
     Route: 048
     Dates: start: 20060508, end: 20060513
  4. PULMICORT [Concomitant]
     Indication: ASTHMA
     Route: 055
     Dates: start: 20060417, end: 20060513

REACTIONS (1)
  - STEVENS-JOHNSON SYNDROME [None]
